FAERS Safety Report 8365811-9 (Version None)
Quarter: 2012Q2

REPORT INFORMATION
  Report Type: 
  Country: None (occurrence: None)
  Receive Date: 20120517
  Receipt Date: 20120514
  Transmission Date: 20120825
  Serious: Yes (Hospitalization, Other)
  Sender: FDA-Public Use
  Company Number: US-AMGEN-USASP2012030424

PATIENT
  Age: 79 Year
  Sex: Male

DRUGS (1)
  1. NPLATE [Suspect]
     Indication: IDIOPATHIC THROMBOCYTOPENIC PURPURA
     Dosage: 72 MUG, QWK
     Dates: start: 20090521, end: 20120215

REACTIONS (3)
  - MYELODYSPLASTIC SYNDROME [None]
  - ANAEMIA [None]
  - PLATELET COUNT DECREASED [None]
